FAERS Safety Report 7283687-8 (Version None)
Quarter: 2011Q1

REPORT INFORMATION
  Report Type: 
  Country: None (occurrence: None)
  Receive Date: 20110204
  Receipt Date: 20110204
  Transmission Date: 20110831
  Serious: Yes (Other)
  Sender: FDA-Public Use
  Company Number: None

PATIENT
  Sex: Male
  Weight: 77.1115 kg

DRUGS (1)
  1. CARVEDILOL [Suspect]
     Indication: MYOCARDIAL INFARCTION
     Dosage: 12.5 MG 2X DAY ORAL
     Route: 048
     Dates: start: 20100901, end: 20110101

REACTIONS (3)
  - DIZZINESS [None]
  - COGNITIVE DISORDER [None]
  - ANGER [None]
